FAERS Safety Report 11257763 (Version 3)
Quarter: 2017Q3

REPORT INFORMATION
  Report Type: Report from Study
  Country: US (occurrence: US)
  Receive Date: 20150710
  Receipt Date: 20170915
  Transmission Date: 20171127
  Serious: No
  Sender: FDA-Public Use
  Company Number: US-AMGEN-USASP2015067463

PATIENT
  Sex: Female

DRUGS (6)
  1. FOLIC ACID. [Concomitant]
     Active Substance: FOLIC ACID
     Dosage: UNK
  2. SPIRULINA [Concomitant]
     Active Substance: SPIRULINA
     Dosage: UNK
  3. BIOTIN [Concomitant]
     Active Substance: BIOTIN
     Dosage: UNK
  4. ENBREL [Suspect]
     Active Substance: ETANERCEPT
     Indication: RHEUMATOID ARTHRITIS
     Dosage: 50 MG, QWK
     Route: 058
     Dates: start: 2005, end: 20170911
  5. VITAMIN D [Concomitant]
     Active Substance: CHOLECALCIFEROL
     Dosage: UNK
  6. L-LYSINE [Concomitant]
     Active Substance: LYSINE
     Dosage: UNK

REACTIONS (12)
  - Chills [Not Recovered/Not Resolved]
  - Hot flush [Unknown]
  - Pain in extremity [Not Recovered/Not Resolved]
  - Body temperature increased [Recovered/Resolved]
  - Inflammation [Not Recovered/Not Resolved]
  - Blister [Not Recovered/Not Resolved]
  - Herpes zoster [Unknown]
  - Feeling hot [Recovered/Resolved]
  - Stomatitis [Unknown]
  - Rhinorrhoea [Unknown]
  - Gingival bleeding [Unknown]
  - Cystitis [Unknown]

NARRATIVE: CASE EVENT DATE: 2005
